FAERS Safety Report 20393390 (Version 5)
Quarter: 2022Q1

REPORT INFORMATION
  Report Type: Report from Study
  Country: CN (occurrence: CN)
  Receive Date: 20220128
  Receipt Date: 20220307
  Transmission Date: 20220423
  Serious: Yes (Hospitalization, Other)
  Sender: FDA-Public Use
  Company Number: CN-NOVARTISPH-NVSC2022CN014792

PATIENT
  Age: 55 Year
  Sex: Female
  Weight: 58 kg

DRUGS (6)
  1. TYKERB [Suspect]
     Active Substance: LAPATINIB DITOSYLATE
     Indication: Hormone receptor positive breast cancer
     Dosage: 1250 MG, QD (CONCENTRATION 250 MG)
     Route: 048
     Dates: start: 20211209, end: 20211212
  2. TYKERB [Suspect]
     Active Substance: LAPATINIB DITOSYLATE
     Dosage: 1000 MG, QD
     Route: 048
     Dates: start: 20211217, end: 20211230
  3. TYKERB [Suspect]
     Active Substance: LAPATINIB DITOSYLATE
     Dosage: 1000 MG, QD
     Route: 048
     Dates: start: 20211231, end: 20220106
  4. CAPECITABINE [Suspect]
     Active Substance: CAPECITABINE
     Indication: Hormone receptor positive breast cancer
     Dosage: 1.5 G, BID
     Route: 048
     Dates: start: 20211209, end: 20211212
  5. CAPECITABINE [Suspect]
     Active Substance: CAPECITABINE
     Dosage: 1.5 MG, BID
     Route: 048
     Dates: start: 20211217, end: 20211223
  6. CAPECITABINE [Suspect]
     Active Substance: CAPECITABINE
     Dosage: 1.5 MG, BID
     Route: 048
     Dates: start: 20211231, end: 20220106

REACTIONS (3)
  - Drug-induced liver injury [Recovered/Resolved]
  - Hepatic pain [Unknown]
  - Diarrhoea [Recovered/Resolved]

NARRATIVE: CASE EVENT DATE: 20211213
